FAERS Safety Report 24134319 (Version 1)
Quarter: 2024Q3

REPORT INFORMATION
  Report Type: Spontaneous
  Country: US (occurrence: US)
  Receive Date: 20240725
  Receipt Date: 20240725
  Transmission Date: 20241017
  Serious: No
  Sender: SANOFI AVENTIS
  Company Number: US-SA-SAC20240719000577

PATIENT
  Age: 67 Year
  Sex: Male

DRUGS (4)
  1. DUPIXENT [Suspect]
     Active Substance: DUPILUMAB
     Indication: Asthma
     Dosage: 300 MG; EVERY 2 WEEKS
     Route: 058
     Dates: start: 20220722
  2. ELIQUIS [Concomitant]
     Active Substance: APIXABAN
  3. HUMIRA [Concomitant]
     Active Substance: ADALIMUMAB
     Dosage: HUMIRA INJ 40/0.4ML
  4. HUMIRA [Concomitant]
     Active Substance: ADALIMUMAB

REACTIONS (1)
  - Alopecia [Unknown]

NARRATIVE: CASE EVENT DATE: 20240717
